FAERS Safety Report 5245592-8 (Version None)
Quarter: 2007Q1

REPORT INFORMATION
  Report Type: 
  Country: None (occurrence: None)
  Receive Date: 20070216
  Receipt Date: 20070201
  Transmission Date: 20070707
  Serious: Yes (Death)
  Sender: FDA-Public Use
  Company Number: 099

PATIENT
  Sex: Male

DRUGS (2)
  1. FAZACLO ODT [Suspect]
     Indication: SCHIZOPHRENIA
     Dosage: 400 MG PO DAILY
     Route: 048
     Dates: start: 20060803, end: 20070124
  2. CONCERTA [Concomitant]

REACTIONS (4)
  - COMPLETED SUICIDE [None]
  - INJURY ASPHYXIATION [None]
  - INTENTIONAL SELF-INJURY [None]
  - STRESS [None]
